FAERS Safety Report 7232772-5 (Version None)
Quarter: 2011Q1

REPORT INFORMATION
  Report Type: 
  Country: None (occurrence: None)
  Receive Date: 20110119
  Receipt Date: 20110105
  Transmission Date: 20110831
  Serious: Yes (Death, Other)
  Sender: FDA-Public Use
  Company Number: IN-GENENTECH-311094

PATIENT
  Sex: Female

DRUGS (1)
  1. XOLAIR [Suspect]
     Indication: ASTHMA
     Dosage: 300 MG, UNK
     Dates: start: 20101127, end: 20101127

REACTIONS (2)
  - POST PROCEDURAL COMPLICATION [None]
  - ABDOMINAL WOUND DEHISCENCE [None]
